FAERS Safety Report 19055685 (Version 2)
Quarter: 2021Q2

REPORT INFORMATION
  Report Type: Spontaneous
  Country: US (occurrence: US)
  Receive Date: 20210324
  Receipt Date: 20210603
  Transmission Date: 20210717
  Serious: Yes (Hospitalization)
  Sender: FDA-Public Use
  Company Number: US-BAYER-2021-109881

PATIENT
  Age: 49 Year
  Sex: Male

DRUGS (1)
  1. KOGENATE FS [Suspect]
     Active Substance: ANTIHEMOPHILIC FACTOR, HUMAN RECOMBINANT
     Indication: FACTOR VIII DEFICIENCY
     Dosage: 3812 U, AS DIRECTED
     Route: 042
     Dates: start: 20190417

REACTIONS (2)
  - Haemarthrosis [None]
  - Knee operation [None]

NARRATIVE: CASE EVENT DATE: 20210226
